FAERS Safety Report 10738854 (Version 2)
Quarter: 2015Q1

REPORT INFORMATION
  Report Type: Spontaneous
  Country: DE (occurrence: DE)
  Receive Date: 20150126
  Receipt Date: 20150211
  Transmission Date: 20150721
  Serious: Yes (Life-Threatening, Hospitalization, Disabling, Other)
  Sender: FDA-Public Use
  Company Number: DE-PFIZER INC-2015026821

PATIENT
  Age: 38 Year
  Sex: Female

DRUGS (7)
  1. XARELTO [Interacting]
     Active Substance: RIVAROXABAN
     Indication: THROMBOSIS PROPHYLAXIS
     Dosage: 15 MG, DAILY
     Route: 048
  2. NOVAMINSULFON [Interacting]
     Active Substance: METAMIZOLE
     Indication: POSTOPERATIVE ANALGESIA
     Dosage: UNK
  3. LYRICA [Suspect]
     Active Substance: PREGABALIN
     Indication: ANXIETY
     Dosage: 50 MG, DAILY
     Route: 048
  4. PANTOPRAZOLE [Interacting]
     Active Substance: PANTOPRAZOLE SODIUM
     Dosage: 40 MG DAILY
  5. METOCLOPRAMIDE HCL [Interacting]
     Active Substance: METOCLOPRAMIDE HYDROCHLORIDE
     Indication: NAUSEA
  6. VOLTAREN RESINAT [Interacting]
     Active Substance: DICLOFENAC
     Indication: POSTOPERATIVE ANALGESIA
     Dosage: UNK
     Route: 048
  7. FRAXIPARINE [Interacting]
     Active Substance: NADROPARIN CALCIUM
     Dosage: UNK

REACTIONS (7)
  - Discomfort [Unknown]
  - Coma [Unknown]
  - Acute hepatic failure [Recovering/Resolving]
  - Pancreatitis [Unknown]
  - Respiratory failure [Recovering/Resolving]
  - Drug interaction [Unknown]
  - Cholangitis [Unknown]
